FAERS Safety Report 12077917 (Version 1)
Quarter: 2016Q1

REPORT INFORMATION
  Report Type: Spontaneous
  Country: VE (occurrence: VE)
  Receive Date: 20160215
  Receipt Date: 20160215
  Transmission Date: 20160526
  Serious: Yes (Death)
  Sender: FDA-Public Use
  Company Number: VE-ABBVIE-16P-178-1560293-00

PATIENT
  Age: 57 Year

DRUGS (1)
  1. ZEMPLAR [Suspect]
     Active Substance: PARICALCITOL
     Indication: PRODUCT USED FOR UNKNOWN INDICATION
     Route: 042
     Dates: start: 201404, end: 201504

REACTIONS (2)
  - Device related sepsis [Fatal]
  - Haemodialysis [Fatal]

NARRATIVE: CASE EVENT DATE: 20151126
